FAERS Safety Report 12402492 (Version 3)
Quarter: 2016Q2

REPORT INFORMATION
  Report Type: Spontaneous
  Country: IL (occurrence: IL)
  Receive Date: 20160525
  Receipt Date: 20160629
  Transmission Date: 20160815
  Serious: Yes (Hospitalization, Disabling, Other)
  Sender: FDA-Public Use
  Company Number: IL-TEVA-660684ACC

PATIENT
  Age: 47 Year
  Sex: Male

DRUGS (3)
  1. GLUCOSE 5 % [Suspect]
     Active Substance: DEXTROSE
     Indication: COLON CANCER
     Dosage: SECOND TREATMENT
     Route: 042
     Dates: start: 20151109, end: 20151109
  2. GLUCOSE 5 % [Suspect]
     Active Substance: DEXTROSE
     Dosage: FIRST TREATMENT
     Route: 042
     Dates: start: 201510, end: 201510
  3. OXALIPLATIN MEDAC [Suspect]
     Active Substance: OXALIPLATIN
     Indication: COLON CANCER
     Route: 042
     Dates: start: 20151109, end: 20151109

REACTIONS (5)
  - Muscular weakness [Recovered/Resolved]
  - Bronchospasm [Recovered/Resolved]
  - Choking [Recovered/Resolved]
  - Hypoaesthesia [Recovered/Resolved]
  - Anxiety [Recovered/Resolved]

NARRATIVE: CASE EVENT DATE: 20151109
